FAERS Safety Report 21746308 (Version 1)
Quarter: 2022Q4

REPORT INFORMATION
  Report Type: Report from Study
  Country: US (occurrence: None)
  Receive Date: 20221219
  Receipt Date: 20221219
  Transmission Date: 20230112
  Serious: Yes (Other)
  Sender: FDA-Public Use
  Company Number: US-Merck Healthcare KGaA-9372391

PATIENT
  Age: 60 Year
  Sex: Male

DRUGS (2)
  1. SEROSTIM [Suspect]
     Active Substance: SOMATROPIN
     Indication: Product used for unknown indication
     Dates: start: 20210801, end: 20221001
  2. IBUPROFEN [Suspect]
     Active Substance: IBUPROFEN
     Indication: Product used for unknown indication

REACTIONS (17)
  - Renal impairment [Unknown]
  - Neuropathy peripheral [Unknown]
  - Hyperthyroidism [Unknown]
  - Nasopharyngitis [Unknown]
  - Pain in extremity [Unknown]
  - Fatigue [Unknown]
  - Musculoskeletal stiffness [Unknown]
  - Arthritis [Unknown]
  - Infection [Unknown]
  - Exostosis [Unknown]
  - Bone loss [Unknown]
  - Dental caries [Unknown]
  - Loose tooth [Unknown]
  - Staphylococcal skin infection [Unknown]
  - Carbuncle [Unknown]
  - Needle fatigue [Unknown]
  - Treatment noncompliance [Unknown]
